FAERS Safety Report 7170357-X (Version None)
Quarter: 2010Q4

REPORT INFORMATION
  Report Type: 
  Country: None (occurrence: None)
  Receive Date: 20101203
  Receipt Date: 20101119
  Transmission Date: 20110411
  Serious: Yes (Disabling, Other)
  Sender: FDA-Public Use
  Company Number: 2010MA004769

PATIENT
  Age: 47 Year
  Sex: Female

DRUGS (2)
  1. FLUOXETINE [Suspect]
     Indication: ANXIETY
     Dosage: 20 MG; PO
     Route: 048
     Dates: start: 20100827, end: 20100906
  2. ESCITALOPRAM [Suspect]
     Indication: ANXIETY
     Dosage: 10 MG; PO
     Route: 048
     Dates: start: 20100907, end: 20100916

REACTIONS (9)
  - ANXIETY [None]
  - BLOOD PRESSURE INCREASED [None]
  - CONDITION AGGRAVATED [None]
  - HYPERTONIA [None]
  - PANIC ATTACK [None]
  - PHOBIA [None]
  - REFLEXES ABNORMAL [None]
  - SEROTONIN SYNDROME [None]
  - TACHYCARDIA [None]
